FAERS Safety Report 11869553 (Version 5)
Quarter: 2016Q1

REPORT INFORMATION
  Report Type: Report from Study
  Country: US (occurrence: US)
  Receive Date: 20151228
  Receipt Date: 20160202
  Transmission Date: 20160526
  Serious: Yes (Other)
  Sender: FDA-Public Use
  Company Number: US-AMGEN-USASP2015137870

PATIENT
  Age: 63 Year
  Sex: Female

DRUGS (1)
  1. ENBREL [Suspect]
     Active Substance: ETANERCEPT
     Indication: RHEUMATOID ARTHRITIS
     Dosage: UNK UNK, QWK
     Route: 065
     Dates: start: 2015

REACTIONS (11)
  - Anaemia [Unknown]
  - Device issue [Unknown]
  - Injection site pruritus [Unknown]
  - Peripheral swelling [Unknown]
  - Injection site haemorrhage [Unknown]
  - Cataract operation [Unknown]
  - Injection site bruising [Unknown]
  - Injection site erythema [Unknown]
  - Musculoskeletal pain [Unknown]
  - Wrong technique in product usage process [Unknown]
  - Injection site pain [Unknown]

NARRATIVE: CASE EVENT DATE: 2015
